FAERS Safety Report 23542013 (Version 1)
Quarter: 2024Q1

REPORT INFORMATION
  Report Type: Report from Study
  Country: CA (occurrence: CA)
  Receive Date: 20240220
  Receipt Date: 20240220
  Transmission Date: 20240410
  Serious: Yes (Hospitalization)
  Sender: FDA-Public Use
  Company Number: CA-TAKEDA-2024TUS014563

PATIENT
  Age: 76 Year
  Sex: Female

DRUGS (3)
  1. VEDOLIZUMAB [Suspect]
     Active Substance: VEDOLIZUMAB
     Indication: Colitis ulcerative
     Dosage: 300 MILLIGRAM
     Route: 042
     Dates: start: 20231108
  2. Salofalk [Concomitant]
     Dosage: UNK UNK, QD
     Dates: start: 2016
  3. PENTASA [Concomitant]
     Active Substance: MESALAMINE
     Dosage: UNK UNK, 2/WEEK
     Dates: start: 2016

REACTIONS (1)
  - Mesenteric arterial occlusion [Recovered/Resolved]

NARRATIVE: CASE EVENT DATE: 20240206
